FAERS Safety Report 18735685 (Version 1)
Quarter: 2021Q1

REPORT INFORMATION
  Report Type: Spontaneous
  Country: US (occurrence: US)
  Receive Date: 20210113
  Receipt Date: 20210113
  Transmission Date: 20210419
  Serious: Yes (Other)
  Sender: FDA-Public Use
  Company Number: US-MYLANLABS-2021M1001513

PATIENT
  Age: 14 Year
  Sex: Female

DRUGS (4)
  1. CISPLATIN. [Suspect]
     Active Substance: CISPLATIN
     Indication: OVARIAN GERM CELL TERATOMA
     Dosage: 20 MILLIGRAM/SQ. METER, 20MG/M2 X 5 DAYS, SCHEDULED FOR A TOTAL OF 3 CYCLES
     Route: 065
     Dates: start: 20170313
  2. ETOPOSIDE. [Suspect]
     Active Substance: ETOPOSIDE
     Indication: OVARIAN GERM CELL TERATOMA
     Dosage: 100 MILLIGRAM/SQ. METER, 100MG/M2 X 5 DAYS , SCHEDULED FOR A TOTAL OF 3 CYCLES
     Route: 065
     Dates: start: 20170313
  3. BLEOMYCIN [Suspect]
     Active Substance: BLEOMYCIN SULFATE
     Indication: OVARIAN GERM CELL TERATOMA
     Dosage: 15 MILLIGRAM/SQ. METER, 15MG/M2 X 1 DAY, SCHEDULED FOR A TOTAL OF 3 CYCLES
     Route: 065
     Dates: start: 20170313
  4. ESTROGEN [Suspect]
     Active Substance: ESTROGENS
     Indication: HORMONE REPLACEMENT THERAPY
     Dosage: UNK
     Route: 065

REACTIONS (5)
  - Drug ineffective [Unknown]
  - Transdifferentiation of neoplasm [Recovered/Resolved]
  - Ovarian germ cell teratoma [Recovered/Resolved]
  - Off label use [Unknown]
  - Fibromyalgia [Recovered/Resolved]
